FAERS Safety Report 9031800 (Version 1)
Quarter: 2013Q1

REPORT INFORMATION
  Report Type: Spontaneous
  Country: US (occurrence: US)
  Receive Date: 20130124
  Receipt Date: 20130124
  Transmission Date: 20140127
  Serious: Yes (Other)
  Sender: FDA-Public Use
  Company Number: US-PERRIGO-13US000426

PATIENT
  Age: 65 Year
  Sex: Female
  Weight: 97.51 kg

DRUGS (7)
  1. PHENOL 1.4% CHERRY 328 [Suspect]
     Indication: OROPHARYNGEAL PAIN
     Dosage: 2 SPRAYS, DAILY
     Route: 048
     Dates: start: 20130113, end: 20130114
  2. LIPID MODIFYING AGENTS [Concomitant]
     Indication: BLOOD CHOLESTEROL INCREASED
     Dosage: UNK
     Route: 048
  3. TEGRETOL [Concomitant]
     Indication: CONVULSION
     Dosage: UNK
     Route: 065
  4. SLEEPING PILL [Concomitant]
     Indication: SLEEP DISORDER
     Dosage: UNK
     Route: 065
  5. VITAMINS NOS [Concomitant]
     Indication: ROUTINE HEALTH MAINTENANCE
     Dosage: UNK
     Route: 065
  6. DRUGS USED IN DIABETES [Concomitant]
     Indication: DIABETES MELLITUS
     Dosage: UNK
     Route: 065
  7. ANTIHYPERTENSIVES [Concomitant]
     Indication: HYPERTENSION
     Dosage: UNK
     Route: 065

REACTIONS (5)
  - Anaphylactic shock [Not Recovered/Not Resolved]
  - Sensation of foreign body [Not Recovered/Not Resolved]
  - Dyspnoea [Not Recovered/Not Resolved]
  - Incorrect dose administered [Recovered/Resolved]
  - Drug ineffective [Unknown]
